FAERS Safety Report 8345708-0 (Version None)
Quarter: 2012Q2

REPORT INFORMATION
  Report Type: 
  Country: None (occurrence: None)
  Receive Date: 20120508
  Receipt Date: 20120416
  Transmission Date: 20120825
  Serious: Yes (Hospitalization)
  Sender: FDA-Public Use
  Company Number: PHHO2008US13497

PATIENT
  Sex: Male

DRUGS (2)
  1. TACROLIMUS [Suspect]
     Indication: LIVER TRANSPLANT
     Dosage: UNK
     Route: 048
     Dates: end: 20081230
  2. ZORTRESS [Suspect]
     Indication: LIVER TRANSPLANT
     Dosage: 2 MG, BID
     Route: 048
     Dates: end: 20081230

REACTIONS (4)
  - GASTROINTESTINAL HAEMORRHAGE [None]
  - GASTROINTESTINAL EROSION [None]
  - HAEMORRHOIDS [None]
  - GASTROINTESTINAL ULCER [None]
